FAERS Safety Report 22020909 (Version 1)
Quarter: 2023Q1

REPORT INFORMATION
  Report Type: Spontaneous
  Country: CA (occurrence: CA)
  Receive Date: 20230222
  Receipt Date: 20230222
  Transmission Date: 20230418
  Serious: Yes (Other)
  Sender: FDA-Public Use
  Company Number: CA-AstraZeneca-2023A038029

PATIENT
  Age: 72 Year
  Sex: Female

DRUGS (1)
  1. TRASTUZUMAB DERUXTECAN [Suspect]
     Active Substance: TRASTUZUMAB DERUXTECAN
     Indication: Breast cancer metastatic
     Dosage: UNK
     Route: 042

REACTIONS (3)
  - Ejection fraction decreased [Recovering/Resolving]
  - Cardiac dysfunction [Recovering/Resolving]
  - Intracardiac thrombus [Recovering/Resolving]
